FAERS Safety Report 4986908-7 (Version None)
Quarter: 2006Q2

REPORT INFORMATION
  Report Type: 
  Country: None (occurrence: None)
  Receive Date: 20060501
  Receipt Date: 20060420
  Transmission Date: 20061013
  Serious: Yes (Disabling)
  Sender: FDA-Public Use
  Company Number: PHBS2006IT05835

PATIENT
  Age: 64 Year
  Sex: Female

DRUGS (6)
  1. ZOMETA [Suspect]
     Dosage: 4 MG, UNK
     Route: 042
     Dates: start: 20020802, end: 20050531
  2. TAXOTERE [Concomitant]
     Route: 065
     Dates: start: 20040330, end: 20040913
  3. FLUOROURACIL [Concomitant]
     Route: 065
     Dates: start: 20040330, end: 20040913
  4. AROMASIN [Concomitant]
     Route: 065
     Dates: start: 20041001, end: 20050216
  5. MYOCET [Concomitant]
     Route: 065
     Dates: start: 20050216, end: 20050727
  6. NAVELBINE [Concomitant]
     Route: 065
     Dates: start: 20050216, end: 20050727

REACTIONS (1)
  - PAIN IN JAW [None]
